FAERS Safety Report 4472348-6 (Version None)
Quarter: 2004Q4

REPORT INFORMATION
  Report Type: 
  Country: None (occurrence: None)
  Receive Date: 20041007
  Receipt Date: 20040927
  Transmission Date: 20050328
  Serious: Yes (Other)
  Sender: FDA-Public Use
  Company Number: OSCN-PR-0409S-0279

PATIENT
  Sex: Male

DRUGS (1)
  1. OMNISCAN [Suspect]
     Indication: BACK PAIN
     Dosage: 10 ML, SINGLE DOSE, I.T.
     Route: 037
     Dates: start: 20040927, end: 20040927

REACTIONS (4)
  - ACCIDENTAL EXPOSURE [None]
  - INJECTION SITE PARAESTHESIA [None]
  - INJECTION SITE PRURITUS [None]
  - MEDICATION ERROR [None]
